FAERS Safety Report 20556245 (Version 1)
Quarter: 2022Q1

REPORT INFORMATION
  Report Type: Spontaneous
  Country: CA (occurrence: CA)
  Receive Date: 20220305
  Receipt Date: 20220305
  Transmission Date: 20220423
  Serious: Yes (Other)
  Sender: FDA-Public Use
  Company Number: CA-TEVA-2022-CA-2012599

PATIENT
  Age: 80 Year
  Sex: Male

DRUGS (5)
  1. PANTOPRAZOLE [Suspect]
     Active Substance: PANTOPRAZOLE
     Indication: Gastrooesophageal reflux disease
     Dosage: 40 MILLIGRAM DAILY;
     Route: 048
  2. ABRAXANE [Suspect]
     Active Substance: PACLITAXEL
     Indication: Chemotherapy
     Route: 065
  3. GEMCITABINE [Suspect]
     Active Substance: GEMCITABINE
     Indication: Chemotherapy
     Route: 065
  4. GEMCITABINE [Suspect]
     Active Substance: GEMCITABINE
     Indication: Pancreatic carcinoma metastatic
  5. PACLITAXEL [Suspect]
     Active Substance: PACLITAXEL
     Indication: Pancreatic carcinoma metastatic
     Route: 065

REACTIONS (6)
  - Febrile neutropenia [Unknown]
  - Unmasking of previously unidentified disease [Unknown]
  - Drug withdrawal syndrome [Unknown]
  - Fatigue [Unknown]
  - Pancreatic enzyme abnormality [Unknown]
  - Discontinued product administered [Unknown]
